FAERS Safety Report 9565101 (Version 1)
Quarter: 2013Q3

REPORT INFORMATION
  Report Type: Spontaneous
  Country: CZ (occurrence: CZ)
  Receive Date: 20130930
  Receipt Date: 20130930
  Transmission Date: 20140515
  Serious: Yes (Death, Hospitalization)
  Sender: FDA-Public Use
  Company Number: CZ-ELI_LILLY_AND_COMPANY-CZ201309009319

PATIENT
  Age: 56 Year
  Sex: Male

DRUGS (5)
  1. FORSTEO [Suspect]
     Indication: OSTEOPOROSIS
     Dosage: 20UG, OD
     Route: 058
     Dates: start: 20120110, end: 20130901
  2. HUMULIN R [Concomitant]
     Indication: DIABETES MELLITUS
  3. HUMULIN N (NPH) [Concomitant]
     Indication: DIABETES MELLITUS
  4. MEDROL [Concomitant]
     Indication: ANTINEUTROPHIL CYTOPLASMIC ANTIBODY
     Dosage: 8MG, DAILY
     Dates: start: 2002
  5. CONCOR [Concomitant]

REACTIONS (5)
  - Respiratory failure [Fatal]
  - Anti-neutrophil cytoplasmic antibody positive vasculitis [Not Recovered/Not Resolved]
  - Skin disorder [Not Recovered/Not Resolved]
  - Decubitus ulcer [Not Recovered/Not Resolved]
  - Cellulitis [Not Recovered/Not Resolved]
